FAERS Safety Report 10530107 (Version 1)
Quarter: 2014Q4

REPORT INFORMATION
  Report Type: Spontaneous
  Country: US (occurrence: None)
  Receive Date: 20141020
  Receipt Date: 20141020
  Transmission Date: 20150528
  Serious: Yes (Hospitalization)
  Sender: FDA-Public Use
  Company Number: None

PATIENT
  Age: 28 Year
  Sex: Female
  Weight: 58.97 kg

DRUGS (1)
  1. METHOTREXATE [Suspect]
     Active Substance: METHOTREXATE
     Indication: PSORIATIC ARTHROPATHY
     Route: 058

REACTIONS (6)
  - Nausea [None]
  - Terminal insomnia [None]
  - Menorrhagia [None]
  - Dizziness [None]
  - Dysmenorrhoea [None]
  - Hypotension [None]

NARRATIVE: CASE EVENT DATE: 20141017
